FAERS Safety Report 10214786 (Version 1)
Quarter: 2014Q2

REPORT INFORMATION
  Report Type: Spontaneous
  Country: GB (occurrence: GB)
  Receive Date: 20140603
  Receipt Date: 20140603
  Transmission Date: 20141212
  Serious: Yes (Hospitalization, Other)
  Sender: FDA-Public Use
  Company Number: GB-ELI_LILLY_AND_COMPANY-GB201405007321

PATIENT
  Age: 50 Year
  Sex: Male
  Weight: 88 kg

DRUGS (3)
  1. FLUOXETINE HYDROCHLORIDE [Suspect]
     Indication: DEPRESSED MOOD
     Dosage: 20 MG, QD
     Route: 048
     Dates: start: 20130815, end: 20131127
  2. IBUPROFEN [Concomitant]
     Dosage: UNK
  3. PARACETAMOL [Concomitant]
     Dosage: UNK

REACTIONS (7)
  - Sinus bradycardia [Recovered/Resolved]
  - Orthostatic hypotension [Unknown]
  - Cardiac arrest [Recovered/Resolved]
  - Presyncope [Unknown]
  - Blood creatinine increased [Unknown]
  - Balance disorder [Recovered/Resolved]
  - Dizziness [Recovered/Resolved]
